FAERS Safety Report 7625939-5 (Version None)
Quarter: 2011Q3

REPORT INFORMATION
  Report Type: 
  Country: None (occurrence: None)
  Receive Date: 20110721
  Receipt Date: 20110721
  Transmission Date: 20111222
  Serious: Yes (Hospitalization)
  Sender: FDA-Public Use
  Company Number: None

PATIENT
  Age: 68 Year
  Sex: Male

DRUGS (2)
  1. AVELOX [Concomitant]
     Dosage: 400 MG
     Route: 042
     Dates: start: 20110111, end: 20110111
  2. VANCOMYCIN [Suspect]
     Dosage: 1 G
     Route: 042
     Dates: start: 20110111, end: 20110111

REACTIONS (2)
  - RASH [None]
  - NEPHROPATHY TOXIC [None]
